FAERS Safety Report 19458130 (Version 1)
Quarter: 2021Q2

REPORT INFORMATION
  Report Type: Spontaneous
  Country: CN (occurrence: CN)
  Receive Date: 20210624
  Receipt Date: 20210624
  Transmission Date: 20210717
  Serious: Yes (Hospitalization)
  Sender: FDA-Public Use
  Company Number: CN-SA-2021SA199302

PATIENT
  Age: 73 Year
  Sex: Male

DRUGS (3)
  1. ADEMETIONINE 1,4?BUTANEDISULFONATE [Suspect]
     Active Substance: ADEMETIONINE BUTANEDISULFONATE
     Indication: HEPATIC CIRRHOSIS
     Dosage: 0.5 G, QD
     Route: 041
     Dates: start: 20210412, end: 20210419
  2. CLOPIDOGREL BISULFATE. [Suspect]
     Active Substance: CLOPIDOGREL BISULFATE
     Indication: ANTICOAGULANT THERAPY
     Dosage: 75 MG, QD
     Route: 048
     Dates: start: 20210328, end: 20210413
  3. DABIGATRAN ETEXILATE [Suspect]
     Active Substance: DABIGATRAN ETEXILATE
     Indication: HEPATIC CIRRHOSIS
     Dosage: 110 MG, QD
     Route: 048
     Dates: start: 20210412, end: 20210412

REACTIONS (3)
  - Affect lability [Recovering/Resolving]
  - Coagulopathy [Recovering/Resolving]
  - White blood cell count decreased [Recovering/Resolving]

NARRATIVE: CASE EVENT DATE: 20210413
